FAERS Safety Report 11612092 (Version 3)
Quarter: 2016Q1

REPORT INFORMATION
  Report Type: Spontaneous
  Country: US (occurrence: US)
  Receive Date: 20151008
  Receipt Date: 20160318
  Transmission Date: 20160525
  Serious: No
  Sender: FDA-Public Use
  Company Number: US-VERTEX PHARMACEUTICALS-2015-004288

PATIENT
  Age: 30 Year
  Sex: Male

DRUGS (1)
  1. ORKAMBI [Suspect]
     Active Substance: IVACAFTOR\LUMACAFTOR
     Indication: CYSTIC FIBROSIS
     Dosage: 2 DF (400-250 MG), BID
     Route: 048
     Dates: start: 20150831

REACTIONS (13)
  - Nasopharyngitis [Unknown]
  - Influenza like illness [Unknown]
  - Nephrolithiasis [Unknown]
  - Abdominal pain [Unknown]
  - Dyspnoea [Unknown]
  - Nasal congestion [Unknown]
  - Diarrhoea [Recovered/Resolved]
  - Productive cough [Unknown]
  - Hypoglycaemia [Unknown]
  - Sinusitis [Unknown]
  - Nausea [Unknown]
  - Fatigue [Unknown]
  - Respiration abnormal [Unknown]

NARRATIVE: CASE EVENT DATE: 2015
